FAERS Safety Report 6211451-7 (Version None)
Quarter: 2009Q2

REPORT INFORMATION
  Report Type: 
  Country: None (occurrence: None)
  Receive Date: 20090522
  Receipt Date: 20090417
  Transmission Date: 20091009
  Serious: No
  Sender: FDA-Public Use
  Company Number: 8044905

PATIENT
  Age: 47 Year
  Sex: Male

DRUGS (1)
  1. CIMZIA [Suspect]

REACTIONS (3)
  - FEELING ABNORMAL [None]
  - OPEN WOUND [None]
  - PYREXIA [None]
